FAERS Safety Report 25352938 (Version 1)
Quarter: 2025Q2

REPORT INFORMATION
  Report Type: Spontaneous
  Country: US (occurrence: US)
  Receive Date: 20250523
  Receipt Date: 20250523
  Transmission Date: 20250716
  Serious: No
  Sender: AMGEN
  Company Number: US-AMGEN-USASP2025098444

PATIENT
  Age: 49 Year
  Sex: Female
  Weight: 2.25 kg

DRUGS (1)
  1. XGEVA [Suspect]
     Active Substance: DENOSUMAB
     Indication: Bone cancer
     Route: 065

REACTIONS (1)
  - Tooth disorder [Unknown]
